FAERS Safety Report 5734536-8 (Version None)
Quarter: 2008Q2

REPORT INFORMATION
  Report Type: 
  Country: None (occurrence: None)
  Receive Date: 20080508
  Receipt Date: 20080508
  Transmission Date: 20081010
  Serious: No
  Sender: FDA-Public Use
  Company Number: None

PATIENT
  Sex: Female

DRUGS (1)
  1. SIMVASTATIN [Suspect]
     Indication: HYPERLIPIDAEMIA
     Dosage: 80 MG DAILY PO/1-2 WEEKS
     Route: 048
     Dates: start: 20080415, end: 20080501

REACTIONS (2)
  - PHARMACEUTICAL PRODUCT COMPLAINT [None]
  - URTICARIA [None]
